FAERS Safety Report 18169828 (Version 1)
Quarter: 2020Q3

REPORT INFORMATION
  Report Type: Spontaneous
  Country: CA (occurrence: CA)
  Receive Date: 20200819
  Receipt Date: 20200819
  Transmission Date: 20201103
  Serious: Yes (Hospitalization)
  Sender: FDA-Public Use
  Company Number: CA-ACCORD-195790

PATIENT
  Age: 71 Year
  Sex: Female

DRUGS (8)
  1. CALCIUM [Concomitant]
     Active Substance: CALCIUM
  2. CELEBREX [Concomitant]
     Active Substance: CELECOXIB
  3. METHOTREXATE. [Suspect]
     Active Substance: METHOTREXATE
     Indication: ANTINEUTROPHIL CYTOPLASMIC ANTIBODY POSITIVE
     Route: 058
  4. PROMETRIUM [Concomitant]
     Active Substance: PROGESTERONE
  5. PANTOLOC [Concomitant]
     Active Substance: PANTOPRAZOLE SODIUM
  6. ERGOCALCIFEROL. [Concomitant]
     Active Substance: ERGOCALCIFEROL
  7. IRBESARTAN. [Concomitant]
     Active Substance: IRBESARTAN
  8. LEUCOVORIN. [Concomitant]
     Active Substance: LEUCOVORIN

REACTIONS (6)
  - Dyspnoea [Unknown]
  - Eosinophil percentage increased [Unknown]
  - Pneumonitis [Unknown]
  - Computerised tomogram thorax abnormal [Unknown]
  - Off label use [Unknown]
  - Lymphocyte percentage increased [Unknown]
